FAERS Safety Report 7884691-9 (Version None)
Quarter: 2011Q4

REPORT INFORMATION
  Report Type: 
  Country: None (occurrence: None)
  Receive Date: 20111102
  Receipt Date: 20111028
  Transmission Date: 20120403
  Serious: Yes (Other)
  Sender: FDA-Public Use
  Company Number: CA-PFIZER INC-2011217059

PATIENT
  Age: 58 Year
  Sex: Female

DRUGS (2)
  1. VARENICLINE TARTRATE [Suspect]
     Indication: SMOKING CESSATION THERAPY
     Dosage: 5 MG, 2X/DAY (MORNING AND NIGHT)
     Dates: start: 20110812, end: 20110101
  2. VARENICLINE TARTRATE [Suspect]
     Dosage: 1 MG, 2X/DAY (MORNING AND NIGHT)
     Dates: start: 20110101, end: 20110101

REACTIONS (9)
  - DECREASED APPETITE [None]
  - NAUSEA [None]
  - VOMITING [None]
  - DIARRHOEA [None]
  - PHARYNGITIS [None]
  - ABNORMAL DREAMS [None]
  - INSOMNIA [None]
  - HEADACHE [None]
  - FATIGUE [None]
